FAERS Safety Report 14214286 (Version 2)
Quarter: 2017Q4

REPORT INFORMATION
  Report Type: Spontaneous
  Country: TR (occurrence: TR)
  Receive Date: 20171122
  Receipt Date: 20171129
  Transmission Date: 20180321
  Serious: Yes (Other)
  Sender: FDA-Public Use
  Company Number: TR-ABBVIE-17P-161-2171745-00

PATIENT
  Age: 48 Year
  Sex: Female

DRUGS (2)
  1. KLACID [Suspect]
     Active Substance: CLARITHROMYCIN
     Indication: ANTI-INFECTIVE THERAPY
     Route: 048
     Dates: start: 20170711, end: 20170711
  2. DEPOSILIN [Suspect]
     Active Substance: PENICILLIN G BENZATHINE
     Indication: ANTIBIOTIC THERAPY
     Route: 030
     Dates: start: 20170710, end: 20170710

REACTIONS (3)
  - Flushing [Recovered/Resolved]
  - Dyspnoea [Recovered/Resolved]
  - Bradycardia [Recovered/Resolved]

NARRATIVE: CASE EVENT DATE: 20170711
